FAERS Safety Report 19268557 (Version 1)
Quarter: 2021Q2

REPORT INFORMATION
  Report Type: Spontaneous
  Country: US (occurrence: US)
  Receive Date: 20210517
  Receipt Date: 20210517
  Transmission Date: 20210717
  Serious: Yes (Other)
  Sender: FDA-Public Use
  Company Number: None

PATIENT
  Age: 56 Year
  Sex: Male
  Weight: 74.7 kg

DRUGS (4)
  1. NIACIN EXTENDED RELEASE 1000MG [Suspect]
     Active Substance: NIACIN
     Indication: HIGH DENSITY LIPOPROTEIN DECREASED
     Dosage: ?          QUANTITY:1 TABLET(S);?
     Route: 048
     Dates: start: 20210408, end: 20210508
  2. SIMVASTATIN. [Concomitant]
     Active Substance: SIMVASTATIN
  3. IBUPROFEN. [Concomitant]
     Active Substance: IBUPROFEN
  4. ACETAMINOPHEN. [Concomitant]
     Active Substance: ACETAMINOPHEN

REACTIONS (6)
  - Product substitution issue [None]
  - Rash [None]
  - Insomnia [None]
  - Drug ineffective [None]
  - Vasodilatation [None]
  - Skin irritation [None]

NARRATIVE: CASE EVENT DATE: 20210408
